FAERS Safety Report 9625761 (Version 1)
Quarter: 2013Q4

REPORT INFORMATION
  Report Type: Spontaneous
  Country: US (occurrence: US)
  Receive Date: 20131016
  Receipt Date: 20131016
  Transmission Date: 20140711
  Serious: Yes (Other)
  Sender: FDA-Public Use
  Company Number: US-TEVA-438444USA

PATIENT
  Sex: 0

DRUGS (1)
  1. CLOZAPINE [Suspect]

REACTIONS (1)
  - Lymphoma [Unknown]
